FAERS Safety Report 4679717-X (Version None)
Quarter: 2005Q2

REPORT INFORMATION
  Report Type: 
  Country: None (occurrence: None)
  Receive Date: 20050602
  Receipt Date: 20050523
  Transmission Date: 20051028
  Serious: Yes (Death)
  Sender: FDA-Public Use
  Company Number: RU-ABBOTT-05P-251-0301616-00

PATIENT
  Sex: Male
  Weight: 51 kg

DRUGS (1)
  1. KALETRA [Suspect]
     Indication: HIV INFECTION
     Dosage: 133.3/33.3
     Route: 048
     Dates: start: 20050201, end: 20050514

REACTIONS (9)
  - ASTHENIA [None]
  - BINOCULAR EYE MOVEMENT DISORDER [None]
  - DIPLOPIA [None]
  - ENCEPHALITIS [None]
  - MUSCLE RIGIDITY [None]
  - NAUSEA [None]
  - PHOTOPHOBIA [None]
  - STRABISMUS [None]
  - VOMITING [None]
